FAERS Safety Report 4767075-1 (Version None)
Quarter: 2005Q3

REPORT INFORMATION
  Report Type: 
  Country: None (occurrence: None)
  Receive Date: 20050913
  Receipt Date: 20050822
  Transmission Date: 20060218
  Serious: Yes (Death, Hospitalization, Other)
  Sender: FDA-Public Use
  Company Number: FR-BRISTOL-MYERS SQUIBB COMPANY-13089727

PATIENT
  Age: 85 Year
  Sex: Male

DRUGS (9)
  1. VASTEN TABS 20 MG [Suspect]
     Indication: HYPERCHOLESTEROLAEMIA
     Route: 048
     Dates: end: 20050725
  2. CORDARONE [Suspect]
     Route: 048
     Dates: start: 20050316, end: 20050725
  3. DEROXAT [Suspect]
     Route: 048
     Dates: start: 20040101, end: 20050725
  4. CASODEX [Suspect]
     Indication: PROSTATE CANCER
     Dosage: TABLETS
     Route: 048
     Dates: start: 20050316, end: 20050725
  5. NEXIUM [Suspect]
     Indication: PEPTIC ULCER
     Dosage: TABLETS
     Route: 048
     Dates: start: 20040101, end: 20050725
  6. JOSIR [Suspect]
     Indication: BENIGN PROSTATIC HYPERPLASIA
     Dosage: CAPSULES
     Route: 048
     Dates: end: 20050725
  7. ADANCOR [Concomitant]
     Dosage: TABLETS
     Route: 048
  8. PREVISCAN [Concomitant]
     Indication: ISCHAEMIC STROKE
     Dosage: TABLETS
     Route: 048
     Dates: start: 20041001
  9. TARDYFERON [Concomitant]
     Dosage: TABLETS
     Route: 048
     Dates: start: 20050523

REACTIONS (5)
  - ANGIONEUROTIC OEDEMA [None]
  - CONVULSION [None]
  - CYANOSIS [None]
  - DYSPNOEA [None]
  - RESPIRATORY ARREST [None]
